FAERS Safety Report 17698345 (Version 1)
Quarter: 2020Q2

REPORT INFORMATION
  Report Type: Spontaneous
  Country: US (occurrence: US)
  Receive Date: 20200423
  Receipt Date: 20200423
  Transmission Date: 20200714
  Serious: No
  Sender: FDA-Public Use
  Company Number: US-PFIZER INC-2019197144

PATIENT
  Age: 60 Year
  Sex: Male

DRUGS (1)
  1. SUTENT [Suspect]
     Active Substance: SUNITINIB MALATE
     Indication: INTRAOCULAR MELANOMA
     Dosage: 37.5 MG, CYCLIC (DAILY FOR 28 DAYS, FOLLOWED BY A 14-DAY BREAK WITHOUT MEDICATION)
     Route: 048

REACTIONS (4)
  - Fatigue [Unknown]
  - Off label use [Unknown]
  - Pain in extremity [Unknown]
  - Product use in unapproved indication [Unknown]
